FAERS Safety Report 9727433 (Version 1)
Quarter: 2013Q4

REPORT INFORMATION
  Report Type: Spontaneous
  Country: IT (occurrence: IT)
  Receive Date: 20131203
  Receipt Date: 20131203
  Transmission Date: 20140711
  Serious: Yes (Hospitalization)
  Sender: FDA-Public Use
  Company Number: IT-BAYER-2013-143453

PATIENT
  Age: 49 Year
  Sex: Female

DRUGS (3)
  1. CIPROXIN [Suspect]
     Indication: BACTERIURIA
     Dosage: 500 MG, DAILY DOSE
     Route: 048
     Dates: start: 20130820, end: 20130830
  2. TACHIPIRINA [Suspect]
     Indication: HEADACHE
     Dosage: 500 MG, ONCE
     Route: 048
     Dates: start: 20130906, end: 20130906
  3. AULIN [Suspect]
     Indication: HEADACHE
     Dosage: 1 DF, ONCE
     Route: 048
     Dates: start: 20130901, end: 20130901

REACTIONS (4)
  - Adverse drug reaction [Recovered/Resolved]
  - Erythema [Recovered/Resolved]
  - Pruritus [Recovered/Resolved]
  - Urticaria [Recovered/Resolved]
